FAERS Safety Report 23841970 (Version 1)
Quarter: 2024Q2

REPORT INFORMATION
  Report Type: Spontaneous
  Country: US (occurrence: None)
  Receive Date: 20240509
  Receipt Date: 20240509
  Transmission Date: 20240715
  Serious: Yes (Hospitalization)
  Sender: FDA-Public Use
  Company Number: None

PATIENT
  Age: 49 Year
  Sex: Male

DRUGS (1)
  1. MAYZENT [Suspect]
     Active Substance: SIPONIMOD
     Indication: Multiple sclerosis
     Dosage: 2MG ONCE DAILY ORALLY
     Route: 048
     Dates: start: 20210525

REACTIONS (2)
  - Movement disorder [None]
  - Speech disorder [None]

NARRATIVE: CASE EVENT DATE: 20240423
